FAERS Safety Report 8475117 (Version 5)
Quarter: 2012Q4

REPORT INFORMATION
  Report Type: 
  Country: US (occurrence: US)
  Receive Date: 20120323
  Receipt Date: 20121126
  Transmission Date: 20130627
  Serious: Yes (Disabling, Other)
  Sender: FDA-Public Use
  Company Number: US-ASTRAZENECA-2012SE18806

PATIENT
  Age: 64 Year
  Sex: Female

DRUGS (14)
  1. CRESTOR [Suspect]
     Indication: BLOOD CHOLESTEROL
     Route: 048
     Dates: start: 2007
  2. PRILOSEC DELAYED-RELEASE CAPSULES [Suspect]
     Indication: DYSPEPSIA
     Route: 048
     Dates: start: 2007
  3. IBUPROFEN [Concomitant]
  4. ASPIRIN [Concomitant]
     Dosage: DAILY
  5. CALCIUM 600 WITH VIT D [Concomitant]
  6. ZETIA [Concomitant]
  7. TRILIPIX [Concomitant]
  8. ATENOLOL [Concomitant]
  9. CAPTOPRIL [Concomitant]
  10. THYROID MEDICATION [Concomitant]
  11. LASIX GENERIC [Concomitant]
  12. KLOR-CON [Concomitant]
  13. PAXIL [Concomitant]
     Dosage: RRN
  14. SIX DIFFERENT BLOOD PRESSURE MEDICATIONS [Concomitant]
     Indication: BLOOD PRESSURE ABNORMAL

REACTIONS (5)
  - Deafness bilateral [Unknown]
  - Fall [Unknown]
  - Upper limb fracture [Unknown]
  - Limb injury [Unknown]
  - Incorrect drug administration duration [Unknown]
